FAERS Safety Report 8432518-9 (Version None)
Quarter: 2012Q2

REPORT INFORMATION
  Report Type: 
  Country: None (occurrence: None)
  Receive Date: 20120613
  Receipt Date: 20120610
  Transmission Date: 20120825
  Serious: Yes (Other)
  Sender: FDA-Public Use
  Company Number: PHHY2012QA049914

PATIENT
  Age: 74 Year
  Sex: Male

DRUGS (2)
  1. STALEVO 100 [Suspect]
     Dosage: UNK UKN, UNK
     Route: 048
  2. STALEVO 100 [Suspect]
     Indication: DRUG EFFECT DECREASED
     Dosage: 100 MG, FIVE TIMES DAILY
     Route: 048

REACTIONS (3)
  - HALLUCINATION [None]
  - PSYCHOTIC DISORDER [None]
  - AGITATION [None]
